FAERS Safety Report 20569527 (Version 2)
Quarter: 2022Q1

REPORT INFORMATION
  Report Type: Spontaneous
  Country: US (occurrence: US)
  Receive Date: 20220309
  Receipt Date: 20220312
  Transmission Date: 20220423
  Serious: No
  Sender: FDA-Public Use
  Company Number: US-UNITED THERAPEUTICS-UNT-2022-005110

PATIENT
  Sex: Female

DRUGS (2)
  1. TYVASO [Suspect]
     Active Substance: TREPROSTINIL
     Indication: Pulmonary arterial hypertension
     Dosage: UNK
     Dates: start: 20220224
  2. TYVASO [Suspect]
     Active Substance: TREPROSTINIL
     Dosage: 18 ?G, QID
     Dates: end: 20220306

REACTIONS (11)
  - Cough [Unknown]
  - Arthralgia [Unknown]
  - Pain in extremity [Recovering/Resolving]
  - Fatigue [Unknown]
  - Oropharyngeal pain [Unknown]
  - Confusional state [Unknown]
  - Agitation [Unknown]
  - Poor quality sleep [Unknown]
  - Nervousness [Unknown]
  - Dyspnoea [Not Recovered/Not Resolved]
  - Drug intolerance [Unknown]
